FAERS Safety Report 11431343 (Version 1)
Quarter: 2015Q3

REPORT INFORMATION
  Report Type: Spontaneous
  Country: US (occurrence: US)
  Receive Date: 20150828
  Receipt Date: 20150828
  Transmission Date: 20151125
  Serious: No
  Sender: FDA-Public Use
  Company Number: US-ASTRAZENECA-2014SE11869

PATIENT
  Age: 25088 Day
  Sex: Female
  Weight: 68.9 kg

DRUGS (8)
  1. BYDUREON [Suspect]
     Active Substance: EXENATIDE
     Indication: TYPE 2 DIABETES MELLITUS
     Route: 058
     Dates: start: 201505
  2. TRIHEXYPHENIDYL [Concomitant]
     Active Substance: TRIHEXYPHENIDYL
  3. LISINOPRIL. [Suspect]
     Active Substance: LISINOPRIL
     Dosage: EVERY DAY
     Route: 048
  4. BYDUREON [Suspect]
     Active Substance: EXENATIDE
     Indication: TYPE 2 DIABETES MELLITUS
     Route: 058
  5. DULOXETINE. [Concomitant]
     Active Substance: DULOXETINE
  6. ABILIFY [Concomitant]
     Active Substance: ARIPIPRAZOLE
  7. ATORVASTATIN [Concomitant]
     Active Substance: ATORVASTATIN
     Indication: BLOOD CHOLESTEROL ABNORMAL
  8. POTASSIUM [Concomitant]
     Active Substance: POTASSIUM

REACTIONS (3)
  - Injection site pain [Unknown]
  - Vomiting [Unknown]
  - Nausea [Unknown]

NARRATIVE: CASE EVENT DATE: 20150728
